FAERS Safety Report 25879111 (Version 1)
Quarter: 2025Q4

REPORT INFORMATION
  Report Type: Spontaneous
  Country: US (occurrence: US)
  Receive Date: 20251003
  Receipt Date: 20251003
  Transmission Date: 20260117
  Serious: No
  Sender: SANOFI AVENTIS
  Company Number: US-SANOFI-02674581

PATIENT
  Age: 66 Year
  Sex: Female

DRUGS (1)
  1. LANTUS SOLOSTAR [Suspect]
     Active Substance: INSULIN GLARGINE
     Indication: Type 2 diabetes mellitus
     Dosage: 15 UNITS IN THE MORNING 25 UNITS AT NIGHT BID AND DRUG TREATMENT DURATION:2 OR 3 DAYS
     Route: 065
     Dates: start: 2023

REACTIONS (3)
  - Inappropriate schedule of product administration [Unknown]
  - Product dispensing issue [Unknown]
  - Expired product administered [Unknown]
